FAERS Safety Report 25976258 (Version 1)
Quarter: 2025Q4

REPORT INFORMATION
  Report Type: Spontaneous
  Country: US (occurrence: US)
  Receive Date: 20251029
  Receipt Date: 20251029
  Transmission Date: 20260118
  Serious: No
  Sender: MYLAN
  Company Number: US-MYLANLABS-2025M1089239

PATIENT
  Sex: Female

DRUGS (4)
  1. DOCETAXEL [Suspect]
     Active Substance: DOCETAXEL
     Indication: Product used for unknown indication
     Dosage: (TAXOTERE) 110 MG IN DEXTROSE 5% 272.5 ML)
  2. DOCETAXEL [Suspect]
     Active Substance: DOCETAXEL
     Dosage: (TAXOTERE) 110 MG IN DEXTROSE 5% 272.5 ML)
     Route: 042
  3. DOCETAXEL [Suspect]
     Active Substance: DOCETAXEL
     Dosage: (TAXOTERE) 110 MG IN DEXTROSE 5% 272.5 ML)
     Route: 042
  4. DOCETAXEL [Suspect]
     Active Substance: DOCETAXEL
     Dosage: (TAXOTERE) 110 MG IN DEXTROSE 5% 272.5 ML)

REACTIONS (3)
  - Thermal burn [Recovering/Resolving]
  - Radiation injury [Recovering/Resolving]
  - Product quality issue [Unknown]

NARRATIVE: CASE EVENT DATE: 20250901
